FAERS Safety Report 5319673-4 (Version None)
Quarter: 2007Q2

REPORT INFORMATION
  Report Type: 
  Country: None (occurrence: None)
  Receive Date: 20070508
  Receipt Date: 20070503
  Transmission Date: 20071010
  Serious: Yes (Hospitalization)
  Sender: FDA-Public Use
  Company Number: FR-ALLERGAN-0704609US

PATIENT
  Age: 63 Year
  Sex: Female
  Weight: 51 kg

DRUGS (2)
  1. TIMOLOL MALEATE SOLUTION UNSPECIFIED [Suspect]
     Indication: GLAUCOMA
     Dosage: UNK, UNKNOWN
     Route: 047
  2. DILTIAZEM [Interacting]
     Indication: HYPERTENSION

REACTIONS (3)
  - DRUG INTERACTION [None]
  - LOSS OF CONSCIOUSNESS [None]
  - SINOATRIAL BLOCK [None]
